FAERS Safety Report 5469401-7 (Version None)
Quarter: 2007Q3

REPORT INFORMATION
  Report Type: 
  Country: None (occurrence: None)
  Receive Date: 20070924
  Receipt Date: 20070911
  Transmission Date: 20080115
  Serious: Yes (Congenital Anomaly, Other)
  Sender: FDA-Public Use
  Company Number: 161422ISR

PATIENT

DRUGS (1)
  1. ONDANSETRON [Suspect]
     Indication: HYPEREMESIS GRAVIDARUM
     Route: 048
     Dates: start: 20060115, end: 20060701

REACTIONS (2)
  - DRUG EXPOSURE DURING PREGNANCY [None]
  - MICROCEPHALY [None]
